FAERS Safety Report 8928502 (Version 2)
Quarter: 2012Q4

REPORT INFORMATION
  Report Type: 
  Country: BR (occurrence: BR)
  Receive Date: 20121127
  Receipt Date: 20121129
  Transmission Date: 20130627
  Serious: Yes (Death, Hospitalization)
  Sender: FDA-Public Use
  Company Number: BR-B.I. PHARMACEUTICALS,INC./RIDGEFIELD-2012-BR-01292BR

PATIENT
  Age: 93 Year
  Sex: Female

DRUGS (9)
  1. TRAYENTA [Suspect]
     Indication: BLOOD GLUCOSE INCREASED
     Dosage: 5 mg
     Route: 048
     Dates: end: 20120907
  2. CALTREN [Concomitant]
  3. VASLIP [Concomitant]
  4. ASPIRINA PREVENT [Concomitant]
  5. ATENSINA [Concomitant]
  6. ALPHAGAN [Concomitant]
  7. HYZAAR [Concomitant]
  8. DIGOXINA [Concomitant]
  9. LEVOIDE [Concomitant]

REACTIONS (4)
  - Hypertension [Fatal]
  - Urinary tract infection [Fatal]
  - Pleural effusion [Fatal]
  - Heart rate decreased [Unknown]
